FAERS Safety Report 20785822 (Version 1)
Quarter: 2022Q2

REPORT INFORMATION
  Report Type: Spontaneous
  Country: US (occurrence: None)
  Receive Date: 20220504
  Receipt Date: 20220504
  Transmission Date: 20220720
  Serious: No
  Sender: FDA-Public Use
  Company Number: US-ROCHE-2887468

PATIENT
  Sex: Female

DRUGS (2)
  1. OCREVUS [Suspect]
     Active Substance: OCRELIZUMAB
     Indication: Multiple sclerosis
     Dosage: STRENGTH: 300 MG/10 ML SDV
     Route: 042
     Dates: start: 20210505
  2. VUMERITY [Concomitant]
     Active Substance: DIROXIMEL FUMARATE

REACTIONS (1)
  - Urticaria [Unknown]
